FAERS Safety Report 6620226-6 (Version None)
Quarter: 2010Q1

REPORT INFORMATION
  Report Type: 
  Country: None (occurrence: None)
  Receive Date: 20100304
  Receipt Date: 20100225
  Transmission Date: 20100710
  Serious: Yes (Death)
  Sender: FDA-Public Use
  Company Number: 2010010047

PATIENT
  Age: 67 Year
  Sex: Female

DRUGS (2)
  1. ONSOLIS [Suspect]
     Indication: CANCER PAIN
     Dosage: 800 MCG (200 MCG, 1 IN 6 HR) BU
     Route: 002
     Dates: start: 20091218
  2. FENTANYL-100 [Concomitant]

REACTIONS (1)
  - DEATH [None]
